FAERS Safety Report 4452296-8 (Version None)
Quarter: 2004Q3

REPORT INFORMATION
  Report Type: 
  Country: None (occurrence: None)
  Receive Date: 20040917
  Receipt Date: 20040708
  Transmission Date: 20050211
  Serious: Yes (Other)
  Sender: FDA-Public Use
  Company Number: JP-ROCHE-373899

PATIENT
  Age: 73 Year
  Sex: Female

DRUGS (4)
  1. PEGASYS [Suspect]
     Route: 058
     Dates: start: 20040113, end: 20040511
  2. URSO [Concomitant]
     Route: 046
     Dates: start: 20040224
  3. PROHEPARUM [Concomitant]
     Dosage: REPORTED AS HEPARUM-S
     Route: 048
     Dates: start: 20040511
  4. TERNELIN [Concomitant]
     Route: 048
     Dates: start: 20040608, end: 20040705

REACTIONS (3)
  - BACK PAIN [None]
  - COLITIS [None]
  - CROHN'S DISEASE [None]
